FAERS Safety Report 7392468-6 (Version None)
Quarter: 2011Q2

REPORT INFORMATION
  Report Type: 
  Country: None (occurrence: None)
  Receive Date: 20110404
  Receipt Date: 20101229
  Transmission Date: 20111010
  Serious: No
  Sender: FDA-Public Use
  Company Number: US-BAYER-2011-026881

PATIENT
  Sex: Female
  Weight: 56 kg

DRUGS (2)
  1. MINOCYCLINE [Concomitant]
     Dosage: 1 DF, BID
  2. ALEVE (CAPLET) [Suspect]
     Indication: ARTHRITIS
     Route: 048

REACTIONS (1)
  - BLOOD PRESSURE INCREASED [None]
